FAERS Safety Report 7763737-2 (Version None)
Quarter: 2011Q3

REPORT INFORMATION
  Report Type: 
  Country: None (occurrence: None)
  Receive Date: 20110921
  Receipt Date: 20110914
  Transmission Date: 20111222
  Serious: Yes (Other)
  Sender: FDA-Public Use
  Company Number: US-SP-2011-06224

PATIENT
  Sex: Female

DRUGS (3)
  1. RABAVERT [Suspect]
     Indication: IMMUNISATION
     Route: 030
     Dates: start: 20110226, end: 20110226
  2. IMOGAM RABIES-HT [Suspect]
     Indication: IMMUNISATION
     Route: 030
     Dates: start: 20110226, end: 20110226
  3. IBUPROFEN [Concomitant]

REACTIONS (2)
  - ABDOMINAL DISCOMFORT [None]
  - SYNCOPE [None]
